FAERS Safety Report 14070725 (Version 1)
Quarter: 2017Q4

REPORT INFORMATION
  Report Type: Spontaneous
  Country: US (occurrence: US)
  Receive Date: 20171010
  Receipt Date: 20171010
  Transmission Date: 20180321
  Serious: No
  Sender: FDA-Public Use
  Company Number: US-JNJFOC-20170900282

PATIENT
  Sex: Male
  Weight: 102 kg

DRUGS (8)
  1. FOLIC ACID. [Concomitant]
     Active Substance: FOLIC ACID
  2. ARGININE [Concomitant]
     Active Substance: ARGININE
  3. VITAMIN D3 [Concomitant]
     Active Substance: CHOLECALCIFEROL
  4. IMBRUVICA [Suspect]
     Active Substance: IBRUTINIB
     Indication: CHRONIC LYMPHOCYTIC LEUKAEMIA
     Route: 048
     Dates: start: 20161024
  5. ASPIRIN. [Concomitant]
     Active Substance: ASPIRIN
  6. MULTIVITAMINS [Concomitant]
     Active Substance: VITAMINS
  7. LISINOPRIL. [Concomitant]
     Active Substance: LISINOPRIL
  8. COQ10 OMEGA 3 [Concomitant]

REACTIONS (1)
  - White blood cell count decreased [Unknown]
